FAERS Safety Report 15975206 (Version 1)
Quarter: 2019Q1

REPORT INFORMATION
  Report Type: Spontaneous
  Country: US (occurrence: US)
  Receive Date: 20190218
  Receipt Date: 20190218
  Transmission Date: 20190418
  Serious: Yes (Other)
  Sender: FDA-Public Use
  Company Number: US-TORRENT-00007649

PATIENT
  Sex: Female

DRUGS (2)
  1. IBUPROFEN. [Concomitant]
     Active Substance: IBUPROFEN
     Indication: MUSCLE SPASMS
     Dosage: UNKNOWN
  2. LOSARTAN. [Suspect]
     Active Substance: LOSARTAN
     Indication: HYPERTENSION
     Dosage: SINCE 4-5 YEARS,  PATIENT GOT HER FIRST PRESCRIPTION FROM TORRENT ON 17/NOV/2018

REACTIONS (8)
  - Musculoskeletal pain [Not Recovered/Not Resolved]
  - Gastric infection [Not Recovered/Not Resolved]
  - Neck pain [Not Recovered/Not Resolved]
  - Skin exfoliation [Not Recovered/Not Resolved]
  - Musculoskeletal chest pain [Recovering/Resolving]
  - Musculoskeletal stiffness [Not Recovered/Not Resolved]
  - Hypoaesthesia [Not Recovered/Not Resolved]
  - Feeling abnormal [Not Recovered/Not Resolved]
